FAERS Safety Report 13704331 (Version 1)
Quarter: 2017Q2

REPORT INFORMATION
  Report Type: Spontaneous
  Country: US (occurrence: US)
  Receive Date: 20170629
  Receipt Date: 20170629
  Transmission Date: 20170830
  Serious: Yes (Life-Threatening, Hospitalization, Other)
  Sender: FDA-Public Use
  Company Number: None

PATIENT
  Age: 15 Year
  Sex: Female
  Weight: 56 kg

DRUGS (4)
  1. KETOROLAC [Concomitant]
     Active Substance: KETOROLAC\KETOROLAC TROMETHAMINE
  2. MORPHINE [Concomitant]
     Active Substance: MORPHINE
  3. JADENU [Suspect]
     Active Substance: DEFERASIROX
     Indication: IRON OVERLOAD
     Dosage: ?          OTHER DOSE:MG;?
     Route: 048
     Dates: start: 20160224, end: 20170625
  4. FOLIC ACID. [Concomitant]
     Active Substance: FOLIC ACID

REACTIONS (15)
  - Hypoglycaemia [None]
  - Acute hepatic failure [None]
  - Brain oedema [None]
  - Coagulopathy [None]
  - Mental status changes [None]
  - Haemodialysis [None]
  - Chest pain [None]
  - Transfusion reaction [None]
  - Pain [None]
  - Back pain [None]
  - Encephalopathy [None]
  - Hyperammonaemia [None]
  - Acute chest syndrome [None]
  - Cerebral haemorrhage [None]
  - Lactic acidosis [None]

NARRATIVE: CASE EVENT DATE: 20170626
